FAERS Safety Report 7663578-0 (Version None)
Quarter: 2011Q3

REPORT INFORMATION
  Report Type: 
  Country: None (occurrence: None)
  Receive Date: 20110805
  Receipt Date: 20100830
  Transmission Date: 20111222
  Serious: No
  Sender: FDA-Public Use
  Company Number: US-ABBOTT-10P-163-0668347-00

PATIENT
  Sex: Female
  Weight: 59.02 kg

DRUGS (5)
  1. NIASPAN [Suspect]
     Dates: start: 20100501, end: 20100815
  2. NIASPAN [Suspect]
     Dates: start: 20100820
  3. CALCIUM ACETATE [Concomitant]
     Indication: PRODUCT USED FOR UNKNOWN INDICATION
  4. NIASPAN [Suspect]
     Indication: BLOOD CHOLESTEROL
     Dates: start: 20100815, end: 20100819
  5. COQ10 [Concomitant]
     Indication: PRODUCT USED FOR UNKNOWN INDICATION

REACTIONS (3)
  - RASH [None]
  - BLISTER [None]
  - URTICARIA [None]
